FAERS Safety Report 7378074-8 (Version None)
Quarter: 2011Q1

REPORT INFORMATION
  Report Type: 
  Country: None (occurrence: None)
  Receive Date: 20110328
  Receipt Date: 20110316
  Transmission Date: 20110831
  Serious: Yes (Life-Threatening, Hospitalization)
  Sender: FDA-Public Use
  Company Number: FR-CELGENEUS-056-C5013-11032040

PATIENT
  Sex: Male
  Weight: 76.5 kg

DRUGS (16)
  1. UN ALFA [Concomitant]
     Indication: RENAL OSTEODYSTROPHY
     Dosage: .1071 MICROGRAM
     Route: 048
     Dates: end: 20110307
  2. AMLODIPINE [Concomitant]
     Indication: HYPERTENSION
     Dosage: 5 MILLIGRAM
     Route: 048
     Dates: end: 20110307
  3. NEXIUM [Concomitant]
     Dosage: 40 MILLIGRAM
     Route: 048
  4. COLCHIMAX [Concomitant]
     Indication: GOUT
     Dosage: 1 MILLIGRAM
     Route: 048
     Dates: start: 20110307, end: 20110313
  5. FUROSEMIDE [Concomitant]
     Indication: HYPERTENSION
     Dosage: 40 MILLIGRAM
     Route: 048
  6. ZOMETA [Suspect]
     Dosage: .11 MILLIGRAM
     Route: 058
     Dates: start: 20101101
  7. ZOLADEX [Concomitant]
     Indication: PROSTATE CANCER
     Dosage: .12 MILLIGRAM
     Route: 058
     Dates: start: 20110126
  8. INNOHEP [Concomitant]
     Indication: THROMBOSIS
     Dosage: .7 MILLILITER
     Route: 058
     Dates: start: 20110126
  9. LANTUS [Concomitant]
     Dosage: 18 IU (INTERNATIONAL UNIT)
     Route: 058
     Dates: start: 20060101
  10. PREDNISONE [Suspect]
     Indication: PROSTATE CANCER
     Dosage: 10 MILLIGRAM
     Route: 065
     Dates: start: 20110216, end: 20110309
  11. ATENOLOL [Concomitant]
     Indication: ARRHYTHMIA
     Dosage: 50 MILLIGRAM
     Route: 048
  12. CC-5013\PLACEBO [Suspect]
     Indication: PROSTATE CANCER
     Dosage: 25 MILLIGRAM
     Route: 048
     Dates: start: 20110216, end: 20110309
  13. DOCETAXEL [Suspect]
     Indication: PROSTATE CANCER
     Dosage: 140 MILLIGRAM
     Route: 065
     Dates: start: 20110216, end: 20110309
  14. FOZITEC [Concomitant]
     Indication: HYPERTENSION
     Dosage: 10 MILLIGRAM
     Route: 048
     Dates: end: 20110307
  15. TAHOR [Concomitant]
     Dosage: 40 MILLIGRAM
     Route: 048
     Dates: end: 20110307
  16. ALLOPURINOL [Concomitant]
     Indication: GOUT
     Dosage: 100 MILLIGRAM
     Route: 048

REACTIONS (3)
  - HYPOCALCAEMIA [None]
  - CONVULSION [None]
  - METABOLIC ACIDOSIS [None]
